FAERS Safety Report 4493604-1 (Version None)
Quarter: 2004Q4

REPORT INFORMATION
  Report Type: 
  Country: None (occurrence: None)
  Receive Date: 20041102
  Receipt Date: 20041019
  Transmission Date: 20050328
  Serious: Yes (Other)
  Sender: FDA-Public Use
  Company Number: 2004239780US

PATIENT
  Age: 16 Year
  Sex: Male

DRUGS (7)
  1. DOXORUBICIN HCL [Suspect]
     Indication: T-CELL TYPE ACUTE LEUKAEMIA
  2. VINCRISTINE [Suspect]
     Indication: T-CELL TYPE ACUTE LEUKAEMIA
  3. METHOTREXATE SOL (METHOTREXATE) SOLUTION, STERILE [Suspect]
     Indication: T-CELL TYPE ACUTE LEUKAEMIA
  4. CYTARABINE [Suspect]
     Indication: T-CELL TYPE ACUTE LEUKAEMIA
  5. ETOPOSIDE [Suspect]
     Indication: T-CELL TYPE ACUTE LEUKAEMIA
  6. MERCAPTOPURINE [Suspect]
     Indication: T-CELL TYPE ACUTE LEUKAEMIA
  7. PREDNISONE [Concomitant]

REACTIONS (4)
  - ACUTE LYMPHOCYTIC LEUKAEMIA [None]
  - BONE MARROW TRANSPLANT [None]
  - LEUKOENCEPHALOPATHY [None]
  - RESPIRATORY DISTRESS [None]
